FAERS Safety Report 6006306-7 (Version None)
Quarter: 2008Q4

REPORT INFORMATION
  Report Type: 
  Country: None (occurrence: None)
  Receive Date: 20081215
  Receipt Date: 20081201
  Transmission Date: 20090506
  Serious: Yes (Death)
  Sender: FDA-Public Use
  Company Number: 8040199

PATIENT
  Age: 81 Year
  Sex: Male

DRUGS (4)
  1. KEPPRA [Suspect]
  2. VIMPAT [Concomitant]
  3. PHENYTOIN [Concomitant]
  4. PHENOBARBITAL [Concomitant]

REACTIONS (1)
  - PNEUMONIA [None]
